FAERS Safety Report 15935891 (Version 1)
Quarter: 2019Q1

REPORT INFORMATION
  Report Type: Spontaneous
  Country: GB (occurrence: GB)
  Receive Date: 20190208
  Receipt Date: 20190208
  Transmission Date: 20190417
  Serious: Yes (Life-Threatening, Hospitalization, Disabling, Other)
  Sender: FDA-Public Use
  Company Number: GB-ACCORD-104977

PATIENT
  Age: 37 Year
  Sex: Female
  Weight: 75 kg

DRUGS (22)
  1. ESCITALOPRAM [Suspect]
     Active Substance: ESCITALOPRAM OXALATE
     Indication: DEPRESSION
     Route: 048
  2. METFORMIN [Concomitant]
     Active Substance: METFORMIN HYDROCHLORIDE
  3. GENERICS UK NIFEDIPINE [Concomitant]
  4. QUETIAPINE. [Concomitant]
     Active Substance: QUETIAPINE
  5. PREGABALIN. [Concomitant]
     Active Substance: PREGABALIN
  6. TIOTROPIUM [Concomitant]
     Active Substance: TIOTROPIUM
  7. NEFOPAM [Concomitant]
     Active Substance: NEFOPAM
  8. SODIUM PICOSULFATE [Concomitant]
     Active Substance: SODIUM PICOSULFATE
  9. NAPROXEN. [Concomitant]
     Active Substance: NAPROXEN
  10. BUDESONIDE/FORMOTEROL FUMARATE [Concomitant]
  11. ESCITALOPRAM [Suspect]
     Active Substance: ESCITALOPRAM OXALATE
     Indication: DEPRESSION
     Route: 048
  12. MEPTAZINOL [Concomitant]
     Active Substance: MEPTAZINOL HYDROCHLORIDE
  13. TEMAZEPAM. [Concomitant]
     Active Substance: TEMAZEPAM
  14. DIAZEPAM. [Concomitant]
     Active Substance: DIAZEPAM
  15. MONTELUKAST [Concomitant]
     Active Substance: MONTELUKAST SODIUM
  16. PYRIDOXINE [Concomitant]
     Active Substance: PYRIDOXINE
  17. FOLIC ACID. [Concomitant]
     Active Substance: FOLIC ACID
  18. ADCAL-D3 [Concomitant]
     Active Substance: CALCIUM CARBONATE\CHOLECALCIFEROL
  19. LANSOPRAZOLE. [Concomitant]
     Active Substance: LANSOPRAZOLE
  20. CETIRIZINE [Concomitant]
     Active Substance: CETIRIZINE HYDROCHLORIDE
  21. CASSIA [Concomitant]
  22. METHOTREXATE. [Concomitant]
     Active Substance: METHOTREXATE

REACTIONS (2)
  - Withdrawal syndrome [Unknown]
  - Suicidal ideation [Recovering/Resolving]

NARRATIVE: CASE EVENT DATE: 20180109
